FAERS Safety Report 7093874-X (Version None)
Quarter: 2010Q4

REPORT INFORMATION
  Report Type: 
  Country: None (occurrence: None)
  Receive Date: 20101110
  Receipt Date: 20101102
  Transmission Date: 20110411
  Serious: Yes (Hospitalization)
  Sender: FDA-Public Use
  Company Number: B0683569A

PATIENT
  Sex: Female

DRUGS (7)
  1. ZOFRAN [Suspect]
     Indication: VOMITING
     Dosage: 8MG PER DAY
     Route: 065
     Dates: start: 20100910, end: 20100913
  2. CARBOPLATIN [Concomitant]
     Dosage: 3400MG PER DAY
     Dates: start: 20100908, end: 20100908
  3. TICLOPIDINE HCL [Concomitant]
  4. GEMZAR [Concomitant]
     Dosage: 1600MG PER DAY
  5. DAFLON [Concomitant]
     Dosage: 500MG PER DAY
  6. NORVASC [Concomitant]
     Indication: HYPERTENSION
     Dosage: 5MG PER DAY
  7. UNKNOWN DRUG [Concomitant]

REACTIONS (3)
  - BLISTER [None]
  - ERYTHEMA [None]
  - PRURITUS [None]
